FAERS Safety Report 9276956 (Version 1)
Quarter: 2013Q2

REPORT INFORMATION
  Report Type: Spontaneous
  Country: BR (occurrence: None)
  Receive Date: 20130501
  Receipt Date: 20130501
  Transmission Date: 20140414
  Serious: Yes (Hospitalization)
  Sender: FDA-Public Use
  Company Number: BR-1197991

PATIENT
  Age: 71 Year
  Sex: Female

DRUGS (1)
  1. TRAVATAN 0.004 % OPHTHALMIC SOLUTION (TRAVATAN 0.004%) [Suspect]
     Indication: INTRAOCULAR PRESSURE INCREASED
     Route: 047
     Dates: start: 2009, end: 2009

REACTIONS (2)
  - Neuralgia [None]
  - Facial nerve disorder [None]
